FAERS Safety Report 4565953-X (Version None)
Quarter: 2005Q1

REPORT INFORMATION
  Report Type: 
  Country: None (occurrence: None)
  Receive Date: 20050131
  Receipt Date: 20050121
  Transmission Date: 20050727
  Serious: Yes (Other)
  Sender: FDA-Public Use
  Company Number: FR-MERCK-0501FRA00069

PATIENT
  Age: 48 Year
  Sex: Male

DRUGS (2)
  1. ZOCOR [Suspect]
     Indication: TYPE IIA HYPERLIPIDAEMIA
     Route: 048
     Dates: start: 20041008, end: 20041108
  2. RAMIPRIL [Concomitant]
     Indication: HYPERTENSION
     Route: 048
     Dates: start: 20041008

REACTIONS (1)
  - HEPATITIS C [None]
